FAERS Safety Report 8210691-5 (Version None)
Quarter: 2012Q1

REPORT INFORMATION
  Report Type: 
  Country: None (occurrence: None)
  Receive Date: 20120314
  Receipt Date: 20120305
  Transmission Date: 20120608
  Serious: Yes (Other)
  Sender: FDA-Public Use
  Company Number: US-ASTRAZENECA-2012SE15778

PATIENT
  Sex: Female

DRUGS (2)
  1. VICODIN [Concomitant]
     Dosage: HALF TABLET
  2. CRESTOR [Suspect]
     Dosage: 5 MG/ DAY BUT THE PATIENT TOOK THE MEDICATION JUST IN EVERY THREE DAYS
     Route: 048

REACTIONS (7)
  - CARDIAC DISORDER [None]
  - INAPPROPRIATE SCHEDULE OF DRUG ADMINISTRATION [None]
  - MYOCARDIAL INFARCTION [None]
  - PAIN [None]
  - GAIT DISTURBANCE [None]
  - NEUROPATHY PERIPHERAL [None]
  - ARTHRITIS [None]
